FAERS Safety Report 18446075 (Version 2)
Quarter: 2020Q4

REPORT INFORMATION
  Report Type: Spontaneous
  Country: US (occurrence: US)
  Receive Date: 20201030
  Receipt Date: 20201125
  Transmission Date: 20210114
  Serious: No
  Sender: FDA-Public Use
  Company Number: US-APOTEX-2020AP019498

PATIENT
  Sex: Male

DRUGS (1)
  1. FENTANYL TRANSDERMAL SYSTEM [Suspect]
     Active Substance: FENTANYL
     Indication: PAIN
     Dosage: 1 DOSAGE FORM, ONCE IN 3 DAYS
     Route: 062

REACTIONS (4)
  - Application site scar [Unknown]
  - Product substitution issue [Unknown]
  - Product adhesion issue [Unknown]
  - Device leakage [Unknown]
